FAERS Safety Report 9316224 (Version 1)
Quarter: 2013Q2

REPORT INFORMATION
  Report Type: Report from Study
  Country: VE (occurrence: VE)
  Receive Date: 20130530
  Receipt Date: 20130530
  Transmission Date: 20140414
  Serious: Yes (Death, Hospitalization)
  Sender: FDA-Public Use
  Company Number: PHHY2013VE054244

PATIENT
  Age: 59 Year
  Sex: Female

DRUGS (1)
  1. ACLASTA [Suspect]
     Indication: OSTEOPOROSIS
     Dosage: 5 MG / ML ANNUAL
     Route: 042
     Dates: start: 201211

REACTIONS (3)
  - Renal failure chronic [Fatal]
  - Generalised oedema [Unknown]
  - Pruritus [Unknown]
